FAERS Safety Report 19637826 (Version 1)
Quarter: 2021Q3

REPORT INFORMATION
  Report Type: Spontaneous
  Country: US (occurrence: US)
  Receive Date: 20210730
  Receipt Date: 20210730
  Transmission Date: 20211014
  Serious: Yes (Other)
  Sender: FDA-Public Use
  Company Number: US-PFIZER INC-2019234463

PATIENT
  Age: 51 Year

DRUGS (2)
  1. LYRICA [Suspect]
     Active Substance: PREGABALIN
     Dosage: 300 MG, 3X/DAY (1 CAPSULE TRICE A DAY 90 DAYS)
  2. LYRICA [Suspect]
     Active Substance: PREGABALIN
     Indication: FIBROMYALGIA
     Dosage: 300 MG, 2X/DAY(1 CAPSULE TWICE A DAY 90 DAYS)
     Route: 048

REACTIONS (3)
  - Overdose [Unknown]
  - Gait disturbance [Unknown]
  - Systemic lupus erythematosus [Unknown]
